FAERS Safety Report 7308670-5 (Version None)
Quarter: 2011Q1

REPORT INFORMATION
  Report Type: 
  Country: None (occurrence: None)
  Receive Date: 20110223
  Receipt Date: 20110209
  Transmission Date: 20110831
  Serious: Yes (Hospitalization)
  Sender: FDA-Public Use
  Company Number: PHHY2011CN06699

PATIENT
  Age: 65 Year
  Sex: Male

DRUGS (3)
  1. TEGRETOL [Suspect]
     Indication: TOOTHACHE
     Dosage: 2 DF, TID
     Route: 048
     Dates: start: 20100823, end: 20100930
  2. PREDNISONE [Concomitant]
     Indication: TRIGEMINAL NEURALGIA
  3. TEGRETOL [Suspect]
     Dosage: UNK
     Route: 048
     Dates: start: 20101012

REACTIONS (39)
  - DRUG ERUPTION [None]
  - SWELLING [None]
  - GALLBLADDER OEDEMA [None]
  - LIVER DISORDER [None]
  - NEUTROPHIL COUNT DECREASED [None]
  - HERPES SIMPLEX [None]
  - FLUSHING [None]
  - RASH [None]
  - GLOSSODYNIA [None]
  - OVERDOSE [None]
  - PLATELET COUNT DECREASED [None]
  - ERYTHEMA [None]
  - ASPARTATE AMINOTRANSFERASE INCREASED [None]
  - SYSTEMIC LUPUS ERYTHEMATOSUS RASH [None]
  - RETROPERITONEAL LYMPHADENOPATHY [None]
  - ASCITES [None]
  - DYSPHAGIA [None]
  - HUNGER [None]
  - DRUG RASH WITH EOSINOPHILIA AND SYSTEMIC SYMPTOMS [None]
  - SKIN EXFOLIATION [None]
  - PURPURA [None]
  - HEPATIC CYST [None]
  - TONGUE ULCERATION [None]
  - EOSINOPHIL COUNT INCREASED [None]
  - ALANINE AMINOTRANSFERASE INCREASED [None]
  - ORAL MUCOSAL EXFOLIATION [None]
  - ODYNOPHAGIA [None]
  - OEDEMA PERIPHERAL [None]
  - WHITE BLOOD CELL COUNT INCREASED [None]
  - HEPATITIS [None]
  - OTORRHOEA [None]
  - LYMPHADENOPATHY [None]
  - LIVER INJURY [None]
  - ORAL PAIN [None]
  - PRURITUS [None]
  - HEPATIC STEATOSIS [None]
  - MOUTH ULCERATION [None]
  - LIP DRY [None]
  - MUCOSAL EROSION [None]
